FAERS Safety Report 23430819 (Version 1)
Quarter: 2024Q1

REPORT INFORMATION
  Report Type: Spontaneous
  Country: US (occurrence: None)
  Receive Date: 20240123
  Receipt Date: 20240123
  Transmission Date: 20240410
  Serious: Yes (Other)
  Sender: FDA-Public Use
  Company Number: 2024A015938

PATIENT

DRUGS (1)
  1. CALQUENCE [Suspect]
     Active Substance: ACALABRUTINIB
     Route: 048

REACTIONS (5)
  - White blood cell count decreased [Unknown]
  - Lymphadenopathy [Unknown]
  - Contusion [Unknown]
  - Asthenia [Unknown]
  - Muscular weakness [Unknown]
